FAERS Safety Report 6219205-2 (Version None)
Quarter: 2009Q2

REPORT INFORMATION
  Report Type: 
  Country: None (occurrence: None)
  Receive Date: 20090609
  Receipt Date: 20080807
  Transmission Date: 20091009
  Serious: No
  Sender: FDA-Public Use
  Company Number: US-KINGPHARMUSA00001-K200800946

PATIENT

DRUGS (2)
  1. TIGAN CAPSULES [Suspect]
     Indication: NAUSEA
     Dosage: 300 MG, Q4H PRN
     Route: 048
     Dates: start: 20070801
  2. NORCO [Concomitant]
     Indication: BACK PAIN
     Dosage: 10/325
     Dates: end: 20080601

REACTIONS (1)
  - FALSE POSITIVE LABORATORY RESULT [None]
